FAERS Safety Report 5873783-1 (Version None)
Quarter: 2008Q3

REPORT INFORMATION
  Report Type: 
  Country: None (occurrence: None)
  Receive Date: 20080903
  Receipt Date: 20080903
  Transmission Date: 20090109
  Serious: Yes (Hospitalization)
  Sender: FDA-Public Use
  Company Number: None

PATIENT
  Sex: Male
  Weight: 65 kg

DRUGS (5)
  1. CYCLOPHOSPHAMIDE [Suspect]
     Dosage: 1350 MG
  2. LIPOSOMAL DOXORUBICIN [Suspect]
     Dosage: 72 MG
  3. PREDNISONE [Suspect]
     Dosage: 500 MG
  4. RITUXIMAB [Suspect]
     Dosage: 675 MG
  5. VINCRISTINE SULFATE [Suspect]

REACTIONS (19)
  - ABSCESS INTESTINAL [None]
  - AGITATION [None]
  - ASPARTATE AMINOTRANSFERASE INCREASED [None]
  - BLOOD CULTURE POSITIVE [None]
  - BLOOD POTASSIUM DECREASED [None]
  - CENTRAL LINE INFECTION [None]
  - CEREBRAL DISORDER [None]
  - CONFUSIONAL STATE [None]
  - DISORIENTATION [None]
  - GASTROINTESTINAL NECROSIS [None]
  - HAEMATOCRIT DECREASED [None]
  - HYPOXIA [None]
  - LUNG INFILTRATION [None]
  - MENTAL STATUS CHANGES [None]
  - PYREXIA [None]
  - RALES [None]
  - SMALL INTESTINAL OBSTRUCTION [None]
  - STAPHYLOCOCCAL INFECTION [None]
  - VOMITING [None]
